FAERS Safety Report 4980078-7 (Version None)
Quarter: 2006Q2

REPORT INFORMATION
  Report Type: 
  Country: None (occurrence: None)
  Receive Date: 20060421
  Receipt Date: 20051212
  Transmission Date: 20061013
  Serious: Yes (Hospitalization)
  Sender: FDA-Public Use
  Company Number: US-MERCK-0512USA02146

PATIENT
  Age: 55 Year
  Sex: Female
  Weight: 65 kg

DRUGS (8)
  1. AMITRIPTYLIN [Concomitant]
     Indication: FIBROMYALGIA
     Route: 065
  2. LEVOXYL [Concomitant]
     Indication: THYROID DISORDER
     Route: 065
  3. PROPRANOLOL HYDROCHLORIDE [Concomitant]
     Route: 065
  4. MOTRIN [Concomitant]
     Route: 065
     Dates: start: 19800101
  5. TYLENOL (CAPLET) [Concomitant]
     Route: 065
     Dates: start: 19800101
  6. VIOXX [Suspect]
     Indication: FIBROMYALGIA
     Route: 048
     Dates: start: 20040101, end: 20040822
  7. PREVACID [Concomitant]
     Indication: GASTROOESOPHAGEAL REFLUX DISEASE
     Route: 065
  8. PREVACID [Concomitant]
     Indication: GASTRITIS
     Route: 065

REACTIONS (8)
  - ACUTE MYOCARDIAL INFARCTION [None]
  - ASTHENIA [None]
  - CORONARY ARTERY DISEASE [None]
  - DYSPNOEA [None]
  - FATIGUE [None]
  - GASTROINTESTINAL DISORDER [None]
  - INSOMNIA [None]
  - MUSCLE SPASMS [None]
